FAERS Safety Report 6616203-1 (Version None)
Quarter: 2010Q1

REPORT INFORMATION
  Report Type: 
  Country: None (occurrence: None)
  Receive Date: 20100305
  Receipt Date: 20100301
  Transmission Date: 20100710
  Serious: Yes (Death, Other)
  Sender: FDA-Public Use
  Company Number: PHEH2010US00443

PATIENT
  Sex: Male

DRUGS (1)
  1. GLEEVEC [Suspect]
     Indication: CHRONIC MYELOID LEUKAEMIA
     Dosage: 400 MG/DAY
     Route: 048
     Dates: start: 20080101, end: 20091101

REACTIONS (4)
  - ANOXIC ENCEPHALOPATHY [None]
  - AORTIC STENOSIS [None]
  - ASPIRATION [None]
  - RESPIRATORY ARREST [None]
